FAERS Safety Report 15325657 (Version 3)
Quarter: 2018Q3

REPORT INFORMATION
  Report Type: Spontaneous
  Country: SE (occurrence: SE)
  Receive Date: 20180828
  Receipt Date: 20180828
  Transmission Date: 20181010
  Serious: Yes (Hospitalization, Other)
  Sender: FDA-Public Use
  Company Number: PHHY2017SE204634

PATIENT
  Age: 40 Year
  Sex: Female

DRUGS (9)
  1. HYDROXYCHLOROQUINE SULFATE. [Suspect]
     Active Substance: HYDROXYCHLOROQUINE SULFATE
     Indication: LUPUS NEPHRITIS
     Dosage: 200 MG,UNK
     Route: 065
  2. PREDNISOLONE. [Suspect]
     Active Substance: PREDNISOLONE
     Indication: LUPUS NEPHRITIS
     Dosage: 5 MG,UNK
     Route: 065
  3. BELIMUMAB [Concomitant]
     Active Substance: BELIMUMAB
     Indication: PRODUCT USED FOR UNKNOWN INDICATION
     Dosage: 800 MG,UNK
     Route: 042
  4. RITUXIMAB. [Concomitant]
     Active Substance: RITUXIMAB
     Indication: LUPUS NEPHRITIS
     Dosage: 1000 MG,UNK
     Route: 042
  5. MYCOPHENOLATE MOFETIL. [Suspect]
     Active Substance: MYCOPHENOLATE MOFETIL
     Indication: LUPUS NEPHRITIS
     Dosage: 2000 MG,UNK
     Route: 065
  6. CYCLOPHOSPHAMIDE. [Concomitant]
     Active Substance: CYCLOPHOSPHAMIDE
     Indication: LUPUS NEPHRITIS
     Dosage: 800 MG,UNK
     Route: 065
  7. BORTEZOMIB. [Concomitant]
     Active Substance: BORTEZOMIB
     Indication: LUPUS NEPHRITIS
     Dosage: UNK UNK,UNK
     Route: 065
  8. HYDROXYCHLOROQUINE SULFATE. [Suspect]
     Active Substance: HYDROXYCHLOROQUINE SULFATE
     Dosage: 400 MG,UNK
     Route: 065
  9. DEXAMETHASONE. [Concomitant]
     Active Substance: DEXAMETHASONE
     Indication: LUPUS NEPHRITIS
     Dosage: UNK UNK,UNK
     Route: 065

REACTIONS (3)
  - Appendicitis [Unknown]
  - Intentional product use issue [Unknown]
  - Off label use [Unknown]

NARRATIVE: CASE EVENT DATE: 201607
